FAERS Safety Report 18278652 (Version 1)
Quarter: 2020Q3

REPORT INFORMATION
  Report Type: Spontaneous
  Country: US (occurrence: US)
  Receive Date: 20200917
  Receipt Date: 20200917
  Transmission Date: 20201103
  Serious: No
  Sender: FDA-Public Use
  Company Number: US-UPSHER-SMITH LABORATORIES, LLC-2020USL00098

PATIENT
  Sex: Female
  Weight: 84.35 kg

DRUGS (8)
  1. BACLOFEN. [Suspect]
     Active Substance: BACLOFEN
     Indication: MULTIPLE SCLEROSIS
     Dosage: 20 MG, EVERY 4 HOURS
     Route: 048
  2. LOSARTAN. [Concomitant]
     Active Substance: LOSARTAN
  3. METFORMIN [Concomitant]
     Active Substance: METFORMIN HYDROCHLORIDE
  4. ^TEXODERA^ [Concomitant]
  5. BACLOFEN. [Suspect]
     Active Substance: BACLOFEN
     Indication: MULTIPLE SCLEROSIS
     Dosage: 20 MG, EVERY 4 HOURS
     Route: 048
  6. TRIAMTERENE. [Concomitant]
     Active Substance: TRIAMTERENE
  7. OZEMPIC [Concomitant]
     Active Substance: SEMAGLUTIDE
  8. TRESIBA [Concomitant]
     Active Substance: INSULIN DEGLUDEC

REACTIONS (3)
  - Pain [Recovering/Resolving]
  - Drug ineffective [Recovered/Resolved]
  - Gait disturbance [Recovering/Resolving]
